FAERS Safety Report 5765875-2 (Version None)
Quarter: 2008Q2

REPORT INFORMATION
  Report Type: 
  Country: None (occurrence: None)
  Receive Date: 20080605
  Receipt Date: 20080521
  Transmission Date: 20081010
  Serious: Yes (Hospitalization)
  Sender: FDA-Public Use
  Company Number: 2008AL005596

PATIENT
  Age: 77 Year
  Sex: Male

DRUGS (1)
  1. CARBAMAZEPINE [Suspect]
     Indication: CONVULSION
     Dates: start: 20060401

REACTIONS (7)
  - DRUG RASH WITH EOSINOPHILIA AND SYSTEMIC SYMPTOMS [None]
  - HUMAN HERPESVIRUS 6 INFECTION [None]
  - INFLUENZA LIKE ILLNESS [None]
  - LUNG DISORDER [None]
  - LUNG INFILTRATION [None]
  - LYMPHADENOPATHY [None]
  - TONSILLITIS [None]
